FAERS Safety Report 6317623-5 (Version None)
Quarter: 2009Q3

REPORT INFORMATION
  Report Type: 
  Country: None (occurrence: None)
  Receive Date: 20090821
  Receipt Date: 20090818
  Transmission Date: 20100115
  Serious: Yes (Other)
  Sender: FDA-Public Use
  Company Number: GB-BRISTOL-MYERS SQUIBB COMPANY-14746564

PATIENT
  Age: 54 Year
  Sex: Male

DRUGS (4)
  1. SUSTIVA [Suspect]
     Indication: HIV INFECTION
     Dates: start: 20090301
  2. TRAMADOL [Concomitant]
     Indication: PAIN
  3. METOCLOPRAMIDE [Concomitant]
     Indication: NAUSEA
  4. SENOKOT [Concomitant]
     Indication: CONSTIPATION

REACTIONS (1)
  - NON-HODGKIN'S LYMPHOMA [None]
